FAERS Safety Report 9846948 (Version 1)
Quarter: 2014Q1

REPORT INFORMATION
  Report Type: Spontaneous
  Country: US (occurrence: US)
  Receive Date: 20140127
  Receipt Date: 20140127
  Transmission Date: 20141002
  Serious: Yes (Other)
  Sender: FDA-Public Use
  Company Number: US-009507513-1401USA008857

PATIENT
  Age: 71 Year
  Sex: Male

DRUGS (9)
  1. JANUVIA [Suspect]
     Indication: DIABETES MELLITUS
     Dosage: 50 MG, QD
     Route: 048
     Dates: start: 20140103, end: 20140114
  2. LOVASTATIN [Concomitant]
     Indication: BLOOD CHOLESTEROL
     Dosage: AT NIGHT
  3. GLYBURIDE [Concomitant]
  4. PREDNISONE [Concomitant]
  5. HYDROCHLORTHIAZID [Concomitant]
     Indication: BLOOD PRESSURE
     Dosage: AT NIGHT
  6. IBUPROFEN [Concomitant]
     Indication: PAIN
  7. ASCORBIC ACID [Concomitant]
  8. PRICKLY PEAR [Concomitant]
     Indication: DIABETES MELLITUS
  9. METAGENICS LIPO-GEN [Concomitant]
     Indication: MEMORY IMPAIRMENT

REACTIONS (5)
  - Pancreatitis [Unknown]
  - Abdominal discomfort [Not Recovered/Not Resolved]
  - Decreased appetite [Not Recovered/Not Resolved]
  - Botulism [Not Recovered/Not Resolved]
  - Therapeutic response unexpected [Unknown]
